FAERS Safety Report 4989452-6 (Version None)
Quarter: 2006Q2

REPORT INFORMATION
  Report Type: 
  Country: None (occurrence: None)
  Receive Date: 20060502
  Receipt Date: 20060303
  Transmission Date: 20061013
  Serious: Yes (Hospitalization)
  Sender: FDA-Public Use
  Company Number: US-MERCK-0603USA00701

PATIENT
  Age: 54 Year
  Sex: Female
  Weight: 91 kg

DRUGS (5)
  1. FOSAMAX PLUS D [Suspect]
     Indication: OSTEOPOROSIS
     Route: 048
     Dates: start: 20060130, end: 20060214
  2. FOSAMAX PLUS D [Suspect]
     Route: 048
     Dates: start: 20060101, end: 20060401
  3. PREDNISONE [Concomitant]
     Indication: RHEUMATOID ARTHRITIS
     Route: 048
  4. METHOTREXATE [Concomitant]
     Indication: RHEUMATOID ARTHRITIS
     Route: 048
  5. ATENOLOL [Concomitant]
     Route: 048

REACTIONS (1)
  - PANCREATITIS ACUTE [None]
